FAERS Safety Report 10735249 (Version 1)
Quarter: 2015Q1

REPORT INFORMATION
  Report Type: Spontaneous
  Country: US (occurrence: US)
  Receive Date: 20150125
  Receipt Date: 20150125
  Transmission Date: 20150721
  Serious: No
  Sender: FDA-Public Use
  Company Number: US-GLAXOSMITHKLINE-A1061348A

PATIENT

DRUGS (3)
  1. CLADRIBINE SOLUTION FOR INJECTION [Concomitant]
     Route: 042
  2. MEPRON [Suspect]
     Active Substance: ATOVAQUONE
     Indication: LYMPHOMA
     Route: 048
     Dates: start: 20140129
  3. OMEPRAZOLE. [Concomitant]
     Active Substance: OMEPRAZOLE

REACTIONS (3)
  - Cough [Recovering/Resolving]
  - Laryngitis [Unknown]
  - Product quality issue [Unknown]

NARRATIVE: CASE EVENT DATE: 20140201
